FAERS Safety Report 6371177-6 (Version None)
Quarter: 2009Q3

REPORT INFORMATION
  Report Type: 
  Country: None (occurrence: None)
  Receive Date: 20090923
  Receipt Date: 20071109
  Transmission Date: 20100115
  Serious: Yes (Hospitalization)
  Sender: FDA-Public Use
  Company Number: US-ASTRAZENECA-2007UW01968

PATIENT
  Age: 18860 Day
  Sex: Female
  Weight: 69.4 kg

DRUGS (20)
  1. SEROQUEL [Suspect]
     Indication: SLEEP DISORDER
     Dosage: 25-300MG
     Route: 048
     Dates: start: 20021102, end: 20060101
  2. SEROQUEL [Suspect]
     Route: 048
     Dates: start: 20021102
  3. WELLBUTRIN [Concomitant]
     Dates: start: 20021213
  4. BYETTA [Concomitant]
     Dates: start: 20050822
  5. HUMALOG [Concomitant]
     Dates: start: 20051209
  6. LANTUS [Concomitant]
     Dates: start: 20060116
  7. METHADONE [Concomitant]
     Dates: start: 20030327, end: 20060829
  8. PERCOCET [Concomitant]
     Dosage: STRENGTH- 7.5 TO 325 MG
     Dates: start: 20021003
  9. LORAZEPAM [Concomitant]
     Dates: start: 20021030
  10. ZYRTEC [Concomitant]
     Dates: start: 20021030
  11. TOPAMAX [Concomitant]
     Dates: start: 20021102
  12. IBU [Concomitant]
     Dates: start: 20021102
  13. ZOLOFT [Concomitant]
     Dates: start: 20021102
  14. MIRAPEX [Concomitant]
     Dates: start: 20021104
  15. DURAGESIC-100 [Concomitant]
     Dosage: STRENGTH- 2.5 TO 5 MG TAB
     Dates: start: 20021104
  16. PROMETHAZINE [Concomitant]
     Dates: start: 20021106
  17. FLONASE [Concomitant]
     Dates: start: 20021105
  18. HYZAAR [Concomitant]
     Dosage: STRENGTH- 25-100 MG TAB
     Dates: start: 20021113
  19. WELLBUTRIN SR [Concomitant]
     Dates: start: 20021113
  20. PRILOSEC [Concomitant]
     Dates: start: 20021126

REACTIONS (4)
  - BLOOD GLUCOSE INCREASED [None]
  - DIABETES MELLITUS INADEQUATE CONTROL [None]
  - HYPOGLYCAEMIA [None]
  - VISUAL ACUITY REDUCED [None]
